FAERS Safety Report 11353230 (Version 1)
Quarter: 2015Q3

REPORT INFORMATION
  Report Type: Spontaneous
  Country: US (occurrence: US)
  Receive Date: 20150807
  Receipt Date: 20150807
  Transmission Date: 20151125
  Serious: No
  Sender: FDA-Public Use
  Company Number: US-JNJFOC-20141202643

PATIENT
  Age: 73 Year
  Sex: Male
  Weight: 64.41 kg

DRUGS (2)
  1. MENS ROGAINE EXTRA STRENGTH [Suspect]
     Active Substance: MINOXIDIL
     Route: 061
  2. MENS ROGAINE EXTRA STRENGTH [Suspect]
     Active Substance: MINOXIDIL
     Indication: ALOPECIA
     Dosage: MAYBE ABOUT A TEASPOON, TWICE A DAY MORNING AND NIGHT
     Route: 061

REACTIONS (4)
  - Wrong technique in product usage process [Unknown]
  - Alopecia [Unknown]
  - Product colour issue [Unknown]
  - Product lot number issue [Unknown]
